FAERS Safety Report 9406554 (Version 1)
Quarter: 2013Q3

REPORT INFORMATION
  Report Type: Spontaneous
  Country: SE (occurrence: SE)
  Receive Date: 20130718
  Receipt Date: 20130718
  Transmission Date: 20140515
  Serious: Yes (Death)
  Sender: FDA-Public Use
  Company Number: SE-RANBAXY-2013R1-71294

PATIENT
  Age: 75 Year
  Sex: Female

DRUGS (1)
  1. METFORMIN [Suspect]
     Indication: PRODUCT USED FOR UNKNOWN INDICATION
     Route: 065

REACTIONS (7)
  - Nausea [Fatal]
  - Vomiting [Fatal]
  - Diarrhoea [Fatal]
  - Dehydration [Fatal]
  - Lactic acidosis [Fatal]
  - Renal failure acute [Fatal]
  - Blood creatinine increased [Fatal]
